FAERS Safety Report 16690883 (Version 1)
Quarter: 2019Q3

REPORT INFORMATION
  Report Type: Spontaneous
  Country: GB (occurrence: GB)
  Receive Date: 20190811
  Receipt Date: 20190811
  Transmission Date: 20191004
  Serious: Yes (Other)
  Sender: FDA-Public Use
  Company Number: GB-CONCORDIA PHARMACEUTICALS INC.-E2B_00020893

PATIENT
  Age: 56 Year
  Sex: Female

DRUGS (4)
  1. MYCOPHENOLATE MOFETIL. [Suspect]
     Active Substance: MYCOPHENOLATE MOFETIL
     Indication: IMMUNOSUPPRESSANT DRUG THERAPY
     Dates: start: 2014, end: 2015
  2. MYCOPHENOLATE MOFETIL. [Suspect]
     Active Substance: MYCOPHENOLATE MOFETIL
     Dosage: RELATIVELY MODEST DOSES OF IMMUNOSUPPRESSION
     Dates: start: 2015, end: 2015
  3. PREDNISOLONE. [Suspect]
     Active Substance: PREDNISOLONE
     Indication: IMMUNOSUPPRESSANT DRUG THERAPY
     Dosage: RELATIVELY MODEST DOSES OF IMMUNOSUPPRESSION, WEANED
     Dates: start: 2015, end: 2015
  4. PREDNISOLONE. [Suspect]
     Active Substance: PREDNISOLONE
     Dates: start: 2014, end: 2015

REACTIONS (5)
  - Bacterial infection [Recovering/Resolving]
  - Infected skin ulcer [Recovering/Resolving]
  - Post transplant lymphoproliferative disorder [Recovered/Resolved]
  - Cytomegalovirus infection [Unknown]
  - Diffuse large B-cell lymphoma [Recovered/Resolved]

NARRATIVE: CASE EVENT DATE: 201502
